FAERS Safety Report 7540943-3 (Version None)
Quarter: 2011Q2

REPORT INFORMATION
  Report Type: 
  Country: None (occurrence: None)
  Receive Date: 20110610
  Receipt Date: 20110606
  Transmission Date: 20111010
  Serious: No
  Sender: FDA-Public Use
  Company Number: US-PFIZER INC-2011124777

PATIENT
  Sex: Male

DRUGS (1)
  1. CHILDREN'S ADVIL [Suspect]
     Dosage: UNK
     Route: 065

REACTIONS (3)
  - ACCIDENTAL OVERDOSE [None]
  - ACCIDENTAL DRUG INTAKE BY CHILD [None]
  - VOMITING [None]
